FAERS Safety Report 7347472-0 (Version None)
Quarter: 2011Q1

REPORT INFORMATION
  Report Type: 
  Country: None (occurrence: None)
  Receive Date: 20110311
  Receipt Date: 20110309
  Transmission Date: 20110831
  Serious: Yes (Death, Hospitalization, Other)
  Sender: FDA-Public Use
  Company Number: BE-ABBOTT-10P-013-0639951-00

PATIENT
  Sex: Male
  Weight: 61.3 kg

DRUGS (1)
  1. HUMIRA [Suspect]
     Indication: RHEUMATOID ARTHRITIS
     Dates: start: 20061122, end: 20100201

REACTIONS (12)
  - SEPTIC SHOCK [None]
  - OBSTRUCTIVE AIRWAYS DISORDER [None]
  - COLORECTAL CANCER METASTATIC [None]
  - VITAMIN D DECREASED [None]
  - DYSPNOEA [None]
  - ATRIAL FIBRILLATION [None]
  - VENTRICULAR TACHYCARDIA [None]
  - GASTROINTESTINAL HAEMORRHAGE [None]
  - PNEUMONIA [None]
  - GASTRIC CANCER [None]
  - ESCHERICHIA SEPSIS [None]
  - TOXICITY TO VARIOUS AGENTS [None]
